FAERS Safety Report 6922285-X (Version None)
Quarter: 2010Q3

REPORT INFORMATION
  Report Type: 
  Country: None (occurrence: None)
  Receive Date: 20100813
  Receipt Date: 20100804
  Transmission Date: 20110219
  Serious: Yes (Hospitalization)
  Sender: FDA-Public Use
  Company Number: US-BIOGENIDEC-2010BI026586

PATIENT
  Age: 60 Year
  Sex: Female
  Weight: 68 kg

DRUGS (2)
  1. AVONEX [Suspect]
     Indication: MULTIPLE SCLEROSIS
     Route: 030
     Dates: start: 20010815, end: 20030801
  2. AVONEX [Suspect]
     Route: 030
     Dates: start: 20030901

REACTIONS (7)
  - INFLUENZA LIKE ILLNESS [None]
  - INJECTION SITE PAIN [None]
  - LABORATORY TEST ABNORMAL [None]
  - MALAISE [None]
  - PANCREATITIS [None]
  - PANCREATOLITHIASIS [None]
  - PARAESTHESIA [None]
